FAERS Safety Report 5215188-2 (Version None)
Quarter: 2007Q1

REPORT INFORMATION
  Report Type: 
  Country: None (occurrence: None)
  Receive Date: 20061108
  Receipt Date: 20060426
  Transmission Date: 20070707
  Serious: Yes (Hospitalization)
  Sender: FDA-Public Use
  Company Number: US200604004676

PATIENT
  Age: 53 Year
  Sex: Female

DRUGS (12)
  1. PROZAC [Suspect]
     Indication: DRUG USE FOR UNKNOWN INDICATION
  2. CYMBALTA [Suspect]
     Indication: DRUG USE FOR UNKNOWN INDICATION
  3. ESZOPICLONE (ESZOPICLONE) [Concomitant]
  4. WELLBUTRIN [Concomitant]
  5. TRAZODONE HCL [Concomitant]
  6. HORMONES AND RELATED AGENTS [Concomitant]
  7. SOMA [Concomitant]
  8. NICOTINE POLACRILEX (NICOTINE POLACRILEX) [Concomitant]
  9. IBUPROFEN [Concomitant]
  10. ASPIRIN [Concomitant]
  11. MULTIVITAMINS (ASCORBIC ACID, ERGOCALCIFEROL, FOLIC ACID, NICOTINAMIDE [Concomitant]
  12. MINERAL SUPPLEMENTS [Concomitant]

REACTIONS (7)
  - ALCOHOL USE [None]
  - APHASIA [None]
  - ASPARTATE AMINOTRANSFERASE INCREASED [None]
  - DEPRESSED LEVEL OF CONSCIOUSNESS [None]
  - FEELING ABNORMAL [None]
  - SUICIDE ATTEMPT [None]
  - TREATMENT NONCOMPLIANCE [None]
